FAERS Safety Report 7284519-4 (Version None)
Quarter: 2011Q1

REPORT INFORMATION
  Report Type: 
  Country: None (occurrence: None)
  Receive Date: 20110209
  Receipt Date: 20110128
  Transmission Date: 20110831
  Serious: Yes (Hospitalization)
  Sender: FDA-Public Use
  Company Number: US-ASTRAZENECA-2011SE05239

PATIENT
  Age: 49 Year
  Sex: Male

DRUGS (1)
  1. SEROQUEL [Suspect]
     Dosage: 75 MG+75MG+400 MG
     Route: 048

REACTIONS (4)
  - NO ADVERSE EVENT [None]
  - ASPIRATION [None]
  - THERAPEUTIC RESPONSE UNEXPECTED [None]
  - SEDATION [None]
